FAERS Safety Report 4934740-2 (Version None)
Quarter: 2006Q1

REPORT INFORMATION
  Report Type: 
  Country: None (occurrence: None)
  Receive Date: 20060307
  Receipt Date: 20050908
  Transmission Date: 20060701
  Serious: Yes (Hospitalization, Other)
  Sender: FDA-Public Use
  Company Number: US-MERCK-0509USA01076

PATIENT
  Age: 73 Year
  Sex: Female
  Weight: 59 kg

DRUGS (9)
  1. VIOXX [Suspect]
     Indication: OSTEOARTHRITIS
     Route: 048
     Dates: start: 20010416, end: 20020320
  2. VIOXX [Suspect]
     Indication: ARTHRITIS
     Route: 048
     Dates: start: 20010416, end: 20020320
  3. NORVASC [Concomitant]
     Route: 065
  4. ASPIRIN [Suspect]
     Route: 065
  5. CALCIUM (UNSPECIFIED) [Concomitant]
     Route: 065
  6. PREMARIN [Concomitant]
     Route: 065
  7. CECLOR [Concomitant]
     Route: 065
  8. COUMADIN [Suspect]
     Route: 065
  9. CELEBREX [Concomitant]
     Route: 065

REACTIONS (49)
  - ANAEMIA [None]
  - ANTITHROMBIN III DECREASED [None]
  - AORTIC VALVE INCOMPETENCE [None]
  - ATRIOVENTRICULAR BLOCK FIRST DEGREE [None]
  - BLOOD HOMOCYSTEINE INCREASED [None]
  - BLOOD PRESSURE DECREASED [None]
  - BORDERLINE GLAUCOMA [None]
  - BUNDLE BRANCH BLOCK RIGHT [None]
  - CATARACT [None]
  - CEREBRAL ATROPHY [None]
  - CEREBRAL INFARCTION [None]
  - CEREBROVASCULAR ACCIDENT [None]
  - CHEST PAIN [None]
  - CONTUSION [None]
  - CONVULSION [None]
  - CORONARY ARTERY DISEASE [None]
  - DEHYDRATION [None]
  - DRUG INEFFECTIVE [None]
  - DYSARTHRIA [None]
  - DYSPNOEA [None]
  - FALL [None]
  - GASTRITIS [None]
  - GASTROOESOPHAGEAL REFLUX DISEASE [None]
  - HAEMATOMA [None]
  - HAEMORRHAGE [None]
  - HEAD INJURY [None]
  - HYPERCHOLESTEROLAEMIA [None]
  - HYPERLIPIDAEMIA [None]
  - HYPERTENSION [None]
  - LACUNAR INFARCTION [None]
  - LIMB INJURY [None]
  - LOW DENSITY LIPOPROTEIN INCREASED [None]
  - MITRAL VALVE INCOMPETENCE [None]
  - MITRAL VALVE PROLAPSE [None]
  - MUSCLE SPASMS [None]
  - MYALGIA [None]
  - MYOCARDIAL INFARCTION [None]
  - PAIN IN EXTREMITY [None]
  - PEPTIC ULCER [None]
  - PHARMACEUTICAL PRODUCT COMPLAINT [None]
  - POOR QUALITY DRUG ADMINISTERED [None]
  - RESTLESS LEGS SYNDROME [None]
  - RETINAL HAEMORRHAGE [None]
  - TONGUE HAEMORRHAGE [None]
  - TRANSIENT ISCHAEMIC ATTACK [None]
  - TRAUMATIC HAEMATOMA [None]
  - URINARY TRACT INFECTION [None]
  - VENTRICULAR DYSFUNCTION [None]
  - VOMITING [None]
